FAERS Safety Report 5022150-1 (Version None)
Quarter: 2006Q2

REPORT INFORMATION
  Report Type: 
  Country: None (occurrence: None)
  Receive Date: 20060605
  Receipt Date: 20060523
  Transmission Date: 20061013
  Serious: Yes (Other)
  Sender: FDA-Public Use
  Company Number: 2006067895

PATIENT
  Sex: Female

DRUGS (4)
  1. NASYN                         (SULBACTAM, AMPICILLIN) [Suspect]
     Indication: ILL-DEFINED DISORDER
     Dosage: INTRAVENOUS
     Route: 042
     Dates: start: 20060510
  2. CLINDAMYCIN PHOSPHATE [Suspect]
     Indication: ILL-DEFINED DISORDER
     Dosage: INTRAVENOUS
     Route: 042
     Dates: start: 20060510
  3. CALONAL (PARACETAMOL) [Concomitant]
  4. LOXONIN                  (LOXOPROGEN SODIUM) [Concomitant]

REACTIONS (1)
  - STEVENS-JOHNSON SYNDROME [None]
